FAERS Safety Report 22268426 (Version 3)
Quarter: 2023Q2

REPORT INFORMATION
  Report Type: Spontaneous
  Country: US (occurrence: US)
  Receive Date: 20230430
  Receipt Date: 20230517
  Transmission Date: 20230722
  Serious: No
  Sender: FDA-Public Use
  Company Number: US-SANOFI-01585844

PATIENT
  Sex: Female

DRUGS (2)
  1. LANTUS SOLOSTAR [Suspect]
     Active Substance: INSULIN GLARGINE
     Indication: Diabetes mellitus
     Dosage: TAKES 6 UNIT AM AND 4 UNITS IN PM
     Route: 065
  2. NOVOLOG [Concomitant]
     Active Substance: INSULIN ASPART
     Dosage: UNK

REACTIONS (3)
  - Blood glucose increased [Unknown]
  - Device issue [Unknown]
  - Inappropriate schedule of product administration [Unknown]
